FAERS Safety Report 17891284 (Version 2)
Quarter: 2020Q4

REPORT INFORMATION
  Report Type: Spontaneous
  Country: US (occurrence: US)
  Receive Date: 20200612
  Receipt Date: 20201007
  Transmission Date: 20210113
  Serious: No
  Sender: FDA-Public Use
  Company Number: US-TOLMAR, INC.-20US021269

PATIENT
  Age: 11 Year
  Sex: Male

DRUGS (2)
  1. ELIGARD [Suspect]
     Active Substance: LEUPROLIDE ACETATE
     Indication: PRECOCIOUS PUBERTY
     Dosage: 30 MG, Q 4 MONTH
     Route: 058
     Dates: start: 20200116
  2. ELIGARD [Suspect]
     Active Substance: LEUPROLIDE ACETATE
     Dosage: 30 MG, Q 4 MONTH
     Route: 058

REACTIONS (4)
  - Syringe issue [None]
  - Circumstance or information capable of leading to medication error [None]
  - Off label use [Unknown]
  - Device leakage [None]

NARRATIVE: CASE EVENT DATE: 20200116
